FAERS Safety Report 14370372 (Version 2)
Quarter: 2018Q1

REPORT INFORMATION
  Report Type: Spontaneous
  Country: FR (occurrence: FR)
  Receive Date: 20180110
  Receipt Date: 20180129
  Transmission Date: 20180509
  Serious: Yes (Hospitalization)
  Sender: FDA-Public Use
  Company Number: FR-MERCK KGAA-2039805

PATIENT
  Sex: Female

DRUGS (2)
  1. LODOZ 10 MG/6.25 MG (BISELECT) [Suspect]
     Active Substance: BISOPROLOL FUMARATE\HYDROCHLOROTHIAZIDE
  2. NOVOTHYROX [Suspect]
     Active Substance: LEVOTHYROXINE SODIUM
     Indication: PRODUCT USED FOR UNKNOWN INDICATION

REACTIONS (11)
  - Erythema [None]
  - Constipation [None]
  - Alopecia [Not Recovered/Not Resolved]
  - Swelling face [None]
  - Palpitations [None]
  - Insomnia [None]
  - Nausea [Not Recovered/Not Resolved]
  - Diarrhoea [None]
  - Pruritus [None]
  - Vertigo [Not Recovered/Not Resolved]
  - Adverse event [Not Recovered/Not Resolved]
